FAERS Safety Report 7681618-X (Version None)
Quarter: 2011Q3

REPORT INFORMATION
  Report Type: 
  Country: None (occurrence: None)
  Receive Date: 20110812
  Receipt Date: 20110808
  Transmission Date: 20111222
  Serious: Yes (Death, Other)
  Sender: FDA-Public Use
  Company Number: PHHY2011US63447

PATIENT
  Age: 56 Year
  Sex: Male
  Weight: 100 kg

DRUGS (13)
  1. IDARUBICIN HCL [Concomitant]
     Indication: ACUTE MYELOID LEUKAEMIA
     Dosage: UNK UKN, UNK
  2. CYTARABINE [Concomitant]
     Indication: ACUTE MYELOID LEUKAEMIA
     Dosage: UNK UKN, UNK
  3. AMITRIPTYLINE HCL [Concomitant]
     Dosage: 1 DF, QHS
     Route: 048
  4. PROMETHAZINE HYDROCHLORIDE [Concomitant]
     Dosage: 1 DF, Q6H PRN
     Route: 048
  5. MORPHINE SULFATE [Concomitant]
     Dosage: 1-2 TABS BID PRN
     Route: 048
  6. PRILOSEC [Concomitant]
     Dosage: 20 MG, DAILY
     Route: 048
  7. METOPROLOL TARTRATE [Concomitant]
     Dosage: 125 MG, BID (100 MG STRENGTH)
     Route: 048
  8. ALLOPURINOL [Concomitant]
     Dosage: 1 DF, BID
  9. NEORAL [Suspect]
     Dosage: 250 MG, BID
     Route: 048
     Dates: end: 20110201
  10. ACYCLOVIR [Concomitant]
     Dosage: 1 DF, BID
     Route: 048
  11. PENICILLIN V POTASSIUM [Concomitant]
     Dosage: 500 MG, BID
     Route: 048
  12. METOPROLOL TARTRATE [Concomitant]
     Dosage: 125 MG, BID (25 MG STRENGTH)
     Route: 048
  13. ALPRAZOLAM [Concomitant]
     Dosage: 1 DF, BID

REACTIONS (9)
  - FEBRILE NEUTROPENIA [None]
  - SOMNOLENCE [None]
  - LEUKAEMIA RECURRENT [None]
  - SEPSIS [None]
  - ACUTE MYELOID LEUKAEMIA [None]
  - FATIGUE [None]
  - HYPOXIA [None]
  - HYPOTENSION [None]
  - PNEUMONIA [None]
